FAERS Safety Report 9015955 (Version 1)
Quarter: 2013Q1

REPORT INFORMATION
  Report Type: Report from Study
  Country: US (occurrence: US)
  Receive Date: 20130116
  Receipt Date: 20130116
  Transmission Date: 20140127
  Serious: Yes (Other)
  Sender: FDA-Public Use
  Company Number: US-JNJFOC-20130106115

PATIENT
  Sex: Female
  Weight: 156.49 kg

DRUGS (1)
  1. STELARA [Suspect]
     Indication: PSORIASIS
     Route: 058
     Dates: start: 201109, end: 201112

REACTIONS (8)
  - Vision blurred [Not Recovered/Not Resolved]
  - Memory impairment [Not Recovered/Not Resolved]
  - Immune system disorder [Unknown]
  - Gait disturbance [Unknown]
  - Arthralgia [Unknown]
  - Haemoptysis [Unknown]
  - Vasculitis [Not Recovered/Not Resolved]
  - Sedation [Not Recovered/Not Resolved]
